FAERS Safety Report 6886472-1 (Version None)
Quarter: 2010Q3

REPORT INFORMATION
  Report Type: 
  Country: None (occurrence: None)
  Receive Date: 20100729
  Receipt Date: 20100706
  Transmission Date: 20110219
  Serious: Yes (Other)
  Sender: FDA-Public Use
  Company Number: US-PFIZER INC-2009174183

PATIENT
  Sex: Female

DRUGS (2)
  1. CELEBREX [Suspect]
     Dosage: UNK
  2. MOBIC [Concomitant]
     Indication: ARTHRITIS
     Dosage: UNK

REACTIONS (2)
  - EAR INFECTION [None]
  - RHEUMATOID ARTHRITIS [None]
